FAERS Safety Report 5678322-6 (Version None)
Quarter: 2008Q1

REPORT INFORMATION
  Report Type: 
  Country: None (occurrence: None)
  Receive Date: 20080320
  Receipt Date: 20080305
  Transmission Date: 20080703
  Serious: Yes (Hospitalization)
  Sender: FDA-Public Use
  Company Number: 2008MB000019

PATIENT
  Age: 41 Year

DRUGS (5)
  1. CEPHALEXIN [Suspect]
     Indication: DRUG USE FOR UNKNOWN INDICATION
     Dosage: 500 MG; TID; PO
     Route: 048
     Dates: start: 20070918
  2. AMOXICILLIN + CLAVULANATE POTASSIUM [Concomitant]
  3. HERCEPTIN [Concomitant]
  4. CARBOPLATIN [Concomitant]
  5. DOCETAXEL [Concomitant]

REACTIONS (1)
  - CLOSTRIDIAL INFECTION [None]
